FAERS Safety Report 8387925-X (Version None)
Quarter: 2012Q2

REPORT INFORMATION
  Report Type: 
  Country: None (occurrence: None)
  Receive Date: 20120525
  Receipt Date: 20120515
  Transmission Date: 20120825
  Serious: Yes (Other)
  Sender: FDA-Public Use
  Company Number: TR-MERCK-1205USA02572

PATIENT
  Age: 55 Year
  Sex: Female

DRUGS (2)
  1. ENBREL [Suspect]
     Indication: RHEUMATOID ARTHRITIS
     Route: 058
     Dates: start: 20110109
  2. CORTONE [Suspect]
     Route: 048
     Dates: start: 20111001

REACTIONS (10)
  - ABSCESS [None]
  - INJECTION SITE VESICLES [None]
  - INJECTION SITE PRURITUS [None]
  - SWELLING [None]
  - CARTILAGE ATROPHY [None]
  - INJECTION SITE INJURY [None]
  - OSTEOLYSIS [None]
  - CALCINOSIS [None]
  - INJECTION SITE ERYTHEMA [None]
  - OEDEMA PERIPHERAL [None]
